FAERS Safety Report 15299323 (Version 6)
Quarter: 2020Q2

REPORT INFORMATION
  Report Type: Report from Study
  Country: BR (occurrence: BR)
  Receive Date: 20180821
  Receipt Date: 20200501
  Transmission Date: 20200713
  Serious: Yes (Life-Threatening, Other)
  Sender: FDA-Public Use
  Company Number: BR-INCYTE CORPORATION-2018IN004982

PATIENT

DRUGS (13)
  1. HYDREA [Concomitant]
     Active Substance: HYDROXYUREA
     Indication: MYELOFIBROSIS
     Dosage: 2 DF, QD
     Route: 065
     Dates: start: 2013
  2. JAKAVI [Suspect]
     Active Substance: RUXOLITINIB
     Dosage: 15 MG, BID (1 TAB IN THE MORNING AND 1 TAB AT NIGHT) (15 MG X 60 TABLETS)
     Route: 048
     Dates: start: 20180525
  3. JAKAVI [Suspect]
     Active Substance: RUXOLITINIB
     Indication: MYELOFIBROSIS
     Dosage: 2 DF, QD (5 MG TABLET X 2, QD)
     Route: 048
     Dates: start: 201712, end: 201801
  4. JAKAVI [Suspect]
     Active Substance: RUXOLITINIB
     Dosage: 30 MG, QD (2 TABLETS OF 15 MG)
     Route: 048
  5. VARICOSS [Concomitant]
     Indication: CARDIOVASCULAR INSUFFICIENCY
     Dosage: UNK
     Route: 065
     Dates: start: 2013
  6. JAKAVI [Suspect]
     Active Substance: RUXOLITINIB
     Dosage: CONCENTRATION 5 MG
     Route: 048
     Dates: start: 201906
  7. JAKAVI [Suspect]
     Active Substance: RUXOLITINIB
     Dosage: CONCENTRATION 20 MG
     Route: 048
  8. JAKAVI [Suspect]
     Active Substance: RUXOLITINIB
     Dosage: 4 DF, QD
     Route: 048
     Dates: start: 20180427
  9. JAKAVI [Suspect]
     Active Substance: RUXOLITINIB
     Dosage: 25 MG, Q12H
     Route: 048
     Dates: end: 201912
  10. LEVOTHYROXINE [LEVOTHYROXINE SODIUM] [Concomitant]
     Active Substance: LEVOTHYROXINE SODIUM
     Indication: THYROID DISORDER
     Dosage: UNK
     Route: 065
  11. EXJADE [Concomitant]
     Active Substance: DEFERASIROX
     Indication: IRON OVERLOAD
     Dosage: UNK
     Route: 065
  12. JAKAVI [Suspect]
     Active Substance: RUXOLITINIB
     Dosage: 10 MG, QD
     Route: 048
  13. HYDROXYUREA. [Concomitant]
     Active Substance: HYDROXYUREA
     Indication: PRODUCT USED FOR UNKNOWN INDICATION
     Dosage: 500 MG, BID
     Route: 048
     Dates: start: 201302

REACTIONS (9)
  - Drug ineffective [Not Recovered/Not Resolved]
  - Platelet count decreased [Unknown]
  - Weight increased [Unknown]
  - Splenomegaly [Not Recovered/Not Resolved]
  - Cough [Unknown]
  - Haemoglobin decreased [Unknown]
  - White blood cell count increased [Not Recovered/Not Resolved]
  - Muscle disorder [Unknown]
  - Hernia [Recovering/Resolving]

NARRATIVE: CASE EVENT DATE: 201712
